FAERS Safety Report 6138195-4 (Version None)
Quarter: 2009Q1

REPORT INFORMATION
  Report Type: 
  Country: None (occurrence: None)
  Receive Date: 20090331
  Receipt Date: 20090324
  Transmission Date: 20090719
  Serious: Yes (Congenital Anomaly)
  Sender: FDA-Public Use
  Company Number: A0680193A

PATIENT
  Sex: Male
  Weight: 3.9 kg

DRUGS (2)
  1. PAXIL [Suspect]
     Indication: DEPRESSION
     Dates: start: 20020201, end: 20040901
  2. PHENERGAN [Concomitant]
     Dates: start: 20020901, end: 20030701

REACTIONS (6)
  - AORTIC ANEURYSM [None]
  - AORTIC VALVE DISEASE [None]
  - DRUG EXPOSURE DURING PREGNANCY [None]
  - ESSENTIAL HYPERTENSION [None]
  - PERSISTENT FOETAL CIRCULATION [None]
  - RENAL DISORDER [None]
